FAERS Safety Report 7751730-5 (Version None)
Quarter: 2011Q3

REPORT INFORMATION
  Report Type: 
  Country: None (occurrence: None)
  Receive Date: 20110915
  Receipt Date: 20110906
  Transmission Date: 20111222
  Serious: Yes (Hospitalization)
  Sender: FDA-Public Use
  Company Number: 2005BI020220

PATIENT
  Age: 38 Year
  Sex: Male

DRUGS (3)
  1. AVONEX [Suspect]
     Indication: MULTIPLE SCLEROSIS
     Route: 030
     Dates: start: 20031001, end: 20050701
  2. AVONEX [Suspect]
     Route: 030
     Dates: start: 20110804
  3. AVONEX [Suspect]
     Route: 030
     Dates: start: 20060418

REACTIONS (5)
  - INTERVERTEBRAL DISC PROTRUSION [None]
  - FALL [None]
  - NEUROPATHY PERIPHERAL [None]
  - PAIN IN EXTREMITY [None]
  - DYSSTASIA [None]
